FAERS Safety Report 19163944 (Version 2)
Quarter: 2021Q2

REPORT INFORMATION
  Report Type: Report from Study
  Country: US (occurrence: US)
  Receive Date: 20210421
  Receipt Date: 20210421
  Transmission Date: 20210717
  Serious: Yes (Hospitalization, Other)
  Sender: FDA-Public Use
  Company Number: US-REGENERON PHARMACEUTICALS, INC.-2021-42723

PATIENT

DRUGS (2)
  1. CASIRIVIMAB AND IMDEVIMAB [Suspect]
     Active Substance: CASIRIVIMAB\IMDEVIMAB
     Indication: COVID-19
     Dosage: UNK
     Dates: start: 20210405, end: 20210405
  2. LISINIPRIL [Concomitant]
     Active Substance: LISINOPRIL
     Indication: HYPERTENSION

REACTIONS (5)
  - Vision blurred [Unknown]
  - Head discomfort [Not Recovered/Not Resolved]
  - Pneumonia [Unknown]
  - Deafness transitory [Unknown]
  - Loss of consciousness [Unknown]

NARRATIVE: CASE EVENT DATE: 20210405
